FAERS Safety Report 4481341-9 (Version None)
Quarter: 2004Q4

REPORT INFORMATION
  Report Type: 
  Country: None (occurrence: None)
  Receive Date: 20041021
  Receipt Date: 20011012
  Transmission Date: 20050328
  Serious: Yes (Hospitalization)
  Sender: FDA-Public Use
  Company Number: FR-GLAXOSMITHKLINE-B0255129A

PATIENT
  Age: 89 Year
  Sex: Female

DRUGS (7)
  1. DEROXAT [Suspect]
     Indication: DEPRESSION
     Dosage: 20MG PER DAY
     Route: 048
     Dates: start: 19990615, end: 20010907
  2. DRIPTANE [Suspect]
     Indication: ENURESIS
     Dosage: 3UNIT PER DAY
     Route: 048
     Dates: start: 19990615, end: 20010907
  3. STRESAM [Suspect]
     Indication: NEUROSIS
     Dosage: 2UNIT PER DAY
     Route: 048
     Dates: end: 20010905
  4. MEDIATENSYL [Suspect]
     Indication: ESSENTIAL HYPERTENSION
     Dosage: 30MG TWICE PER DAY
     Route: 048
     Dates: end: 20010907
  5. CHRONADALATE LP [Suspect]
     Indication: ESSENTIAL HYPERTENSION
     Dosage: 30MG PER DAY
     Route: 048
     Dates: start: 19990615, end: 20010907
  6. INIPOMP [Suspect]
     Indication: ULCER
     Dosage: 40MG PER DAY
     Route: 048
     Dates: end: 20010907
  7. SERMION [Suspect]
     Dosage: 10MG THREE TIMES PER DAY
     Route: 048
     Dates: end: 20010907

REACTIONS (11)
  - COUGH [None]
  - DERMATITIS EXFOLIATIVE [None]
  - DYSPNOEA [None]
  - FACE OEDEMA [None]
  - LEUKOCYTOSIS [None]
  - LYMPHADENOPATHY [None]
  - PRURIGO [None]
  - PRURITUS [None]
  - PYREXIA [None]
  - RASH PUSTULAR [None]
  - SKIN DESQUAMATION [None]
